APPROVED DRUG PRODUCT: CROMOLYN SODIUM
Active Ingredient: CROMOLYN SODIUM
Strength: 10MG/ML
Dosage Form/Route: SOLUTION;INHALATION
Application: A075585 | Product #001
Applicant: BAUSCH HEALTH US LLC
Approved: Dec 21, 2000 | RLD: No | RS: No | Type: DISCN